FAERS Safety Report 8768075 (Version 1)
Quarter: 2012Q4

REPORT INFORMATION
  Report Type: 
  Country: US (occurrence: US)
  Receive Date: 20120829
  Receipt Date: 20120829
  Transmission Date: 20130627
  Serious: Yes (Hospitalization)
  Sender: FDA-Public Use
  Company Number: US-ELI_LILLY_AND_COMPANY-US201208008016

PATIENT
  Age: 78 Year
  Sex: Female

DRUGS (1)
  1. FORTEO [Suspect]
     Indication: OSTEOPOROSIS
     Dosage: 20 ug, qd

REACTIONS (9)
  - Cerebral haemorrhage [Unknown]
  - Fall [Unknown]
  - Head injury [Unknown]
  - Enterococcal infection [Recovered/Resolved]
  - Pneumonia [Unknown]
  - Malaise [Recovered/Resolved]
  - Hallucination [Unknown]
  - Dizziness [Recovered/Resolved]
  - Nausea [Recovered/Resolved]
